FAERS Safety Report 9084954 (Version 1)
Quarter: 2013Q1

REPORT INFORMATION
  Report Type: Spontaneous
  Country: US (occurrence: US)
  Receive Date: 20130218
  Receipt Date: 20130218
  Transmission Date: 20140127
  Serious: Yes (Hospitalization)
  Sender: FDA-Public Use
  Company Number: US-BAYER-2013-019799

PATIENT
  Age: 39 Year
  Sex: Female
  Weight: 113.83 kg

DRUGS (6)
  1. YASMIN [Suspect]
     Indication: MENSTRUAL CYCLE MANAGEMENT
  2. OCELLA [Suspect]
  3. CEPHALEXIN [Concomitant]
     Dosage: 500 MG, UNK
     Route: 048
     Dates: start: 20110122
  4. IBUPROFEN [Concomitant]
     Dosage: 800 MG, UNK
     Route: 048
     Dates: start: 20110914
  5. HYDROCODONE/ACETAMINOPHEN [Concomitant]
     Dosage: 7.5 - 750
     Route: 048
     Dates: start: 20111027
  6. NAPROXEN [Concomitant]
     Dosage: 500 MG, UNK
     Route: 048
     Dates: start: 20111029

REACTIONS (1)
  - Pulmonary embolism [None]
